FAERS Safety Report 16869957 (Version 1)
Quarter: 2019Q3

REPORT INFORMATION
  Report Type: Spontaneous
  Country: IE (occurrence: IE)
  Receive Date: 20190930
  Receipt Date: 20190930
  Transmission Date: 20191005
  Serious: Yes (Other)
  Sender: FDA-Public Use
  Company Number: IE-MYLANLABS-2019M1090412

PATIENT
  Age: 73 Year
  Sex: Female

DRUGS (6)
  1. VALSARTAN KRKA [Concomitant]
     Dosage: 80 MILLIGRAM, QD
  2. BISOPROLOL [Suspect]
     Active Substance: BISOPROLOL
     Dosage: DURATION OF USE - 18 MONTHS IN TOTAL, STOPPED FOR 6 MONTHS AND THEN WENT BACK ON TREATMENT.
     Route: 048
  3. SERC (BETAHISTINE HYDROCHLORIDE) [Concomitant]
     Active Substance: BETAHISTINE HYDROCHLORIDE
     Dosage: DURATION OF USE AT THIS DOSE - OVER 1 YEAR
  4. BISOPROLOL [Suspect]
     Active Substance: BISOPROLOL
     Indication: PALPITATIONS
     Dosage: DURATION OF USE - 18 MONTHS IN TOTAL, STOPPED FOR 6 MONTHS AND THEN WENT BACK ON.
     Route: 048
     Dates: end: 20190423
  5. SERC (BETAHISTINE HYDROCHLORIDE) [Concomitant]
     Active Substance: BETAHISTINE HYDROCHLORIDE
     Dosage: DOSE INCREASE WAS PART OF TREATMENT OF SUSPECTED REACTIONS
  6. VIMOVO [Concomitant]
     Active Substance: ESOMEPRAZOLE MAGNESIUM\NAPROXEN
     Indication: ARTHRITIS
     Dosage: 500/20

REACTIONS (3)
  - Loss of consciousness [Not Recovered/Not Resolved]
  - Syncope [Not Recovered/Not Resolved]
  - Dizziness [Not Recovered/Not Resolved]

NARRATIVE: CASE EVENT DATE: 20190422
